FAERS Safety Report 5562529-2 (Version None)
Quarter: 2007Q4

REPORT INFORMATION
  Report Type: 
  Country: None (occurrence: None)
  Receive Date: 20071217
  Receipt Date: 20071207
  Transmission Date: 20080405
  Serious: Yes (Other)
  Sender: FDA-Public Use
  Company Number: US-BAYER-US-2007-035491

PATIENT
  Age: 22 Year
  Sex: Female
  Weight: 57 kg

DRUGS (1)
  1. YAZ [Suspect]
     Indication: ORAL CONTRACEPTION
     Route: 048
     Dates: start: 20060901, end: 20070901

REACTIONS (11)
  - ABDOMINAL DISCOMFORT [None]
  - CRYING [None]
  - DIARRHOEA [None]
  - INCREASED APPETITE [None]
  - PALPITATIONS [None]
  - PANIC ATTACK [None]
  - PANIC DISORDER [None]
  - PARANOIA [None]
  - POLLAKIURIA [None]
  - RASH MACULAR [None]
  - SYNCOPE [None]
